FAERS Safety Report 11089525 (Version 1)
Quarter: 2015Q2

REPORT INFORMATION
  Report Type: Spontaneous
  Country: GB (occurrence: GB)
  Receive Date: 20150505
  Receipt Date: 20150505
  Transmission Date: 20150821
  Serious: Yes (Life-Threatening, Congenital Anomaly, Other)
  Sender: FDA-Public Use
  Company Number: GB-CIPLA LTD.-2013GB00750

PATIENT

DRUGS (9)
  1. ZIDOVUDINE. [Suspect]
     Active Substance: ZIDOVUDINE
     Indication: ANTIVIRAL TREATMENT
     Route: 064
  2. NORVIR [Suspect]
     Active Substance: RITONAVIR
     Indication: ANTIVIRAL TREATMENT
     Dosage: 200 MG, QD
     Route: 064
     Dates: start: 20060905, end: 20081023
  3. NORVIR [Suspect]
     Active Substance: RITONAVIR
     Dosage: 200 MG, QD
     Route: 064
     Dates: start: 20081023
  4. APTIVUS [Suspect]
     Active Substance: TIPRANAVIR
     Indication: ANTIVIRAL TREATMENT
     Dosage: 1000 MG, QD
     Route: 064
     Dates: start: 20060905, end: 20081023
  5. PREZISTA [Suspect]
     Active Substance: DARUNAVIR ETHANOLATE
     Indication: ANTIVIRAL TREATMENT
     Dosage: 1200 MG, QD
     Route: 064
     Dates: start: 20081023
  6. ISENTRESS [Suspect]
     Active Substance: RALTEGRAVIR POTASSIUM
     Indication: ANTIVIRAL TREATMENT
     Dosage: UNK, QD
     Route: 064
     Dates: start: 20081023, end: 20090221
  7. TRUVADA [Suspect]
     Active Substance: EMTRICITABINE\TENOFOVIR DISOPROXIL FUMARATE
     Indication: ANTIVIRAL TREATMENT
     Dosage: UNK
     Route: 064
     Dates: start: 20070605, end: 20081023
  8. INTELENCE [Suspect]
     Active Substance: ETRAVIRINE
     Dosage: 4000 MG, QD
     Route: 064
     Dates: start: 20081023
  9. INTELENCE [Suspect]
     Active Substance: ETRAVIRINE
     Indication: ANTIVIRAL TREATMENT
     Dosage: 1000 MG, QD
     Route: 064
     Dates: end: 20081023

REACTIONS (24)
  - Meconium stain [Unknown]
  - Umbilical cord abnormality [Unknown]
  - Blood iron decreased [Unknown]
  - Bladder agenesis [Unknown]
  - Exomphalos [Unknown]
  - Fibrosis [Unknown]
  - Caudal regression syndrome [Unknown]
  - Gastrointestinal malformation [Unknown]
  - Tethered cord syndrome [Unknown]
  - Lipodystrophy acquired [Unknown]
  - Musculoskeletal discomfort [Recovered/Resolved]
  - Spina bifida [Unknown]
  - Maternal drugs affecting foetus [None]
  - Genitalia external ambiguous [Unknown]
  - Erythema [Unknown]
  - Anal atresia [Unknown]
  - Sepsis [Unknown]
  - Meningomyelocele [Unknown]
  - Spine malformation [Unknown]
  - Gastrointestinal disorder congenital [Unknown]
  - Congenital anomaly [Unknown]
  - Cloacal exstrophy [Unknown]
  - Congenital genital malformation [Unknown]
  - Neural tube defect [Unknown]
